FAERS Safety Report 7606399-7 (Version None)
Quarter: 2011Q3

REPORT INFORMATION
  Report Type: 
  Country: None (occurrence: None)
  Receive Date: 20110713
  Receipt Date: 20110707
  Transmission Date: 20111222
  Serious: Yes (Other)
  Sender: FDA-Public Use
  Company Number: US-SANOFI-AVENTIS-2011SA043503

PATIENT
  Age: 82 Year
  Sex: Female

DRUGS (4)
  1. MULTAQ [Suspect]
     Indication: ATRIAL FIBRILLATION
     Route: 048
     Dates: start: 20100801
  2. AMIODARONE HCL [Suspect]
     Route: 051
  3. THYROID THERAPY [Concomitant]
     Route: 065
  4. AMIODARONE HCL [Suspect]
     Route: 065
     Dates: end: 20100801

REACTIONS (13)
  - ALOPECIA [None]
  - LIVER FUNCTION TEST ABNORMAL [None]
  - EYE HAEMORRHAGE [None]
  - DYSPHONIA [None]
  - SUICIDAL IDEATION [None]
  - GASTROINTESTINAL DISORDER [None]
  - EMOTIONAL DISORDER [None]
  - DRUG INEFFECTIVE [None]
  - FEELING ABNORMAL [None]
  - SKIN DISCOLOURATION [None]
  - GLOSSITIS [None]
  - GOITRE [None]
  - DECREASED APPETITE [None]
